FAERS Safety Report 4992484-5 (Version None)
Quarter: 2006Q1

REPORT INFORMATION
  Report Type: 
  Country: None (occurrence: None)
  Receive Date: 20060314
  Receipt Date: 20051220
  Transmission Date: 20060701
  Serious: Yes (Hospitalization)
  Sender: FDA-Public Use
  Company Number: 2005-02606

PATIENT
  Age: 71 Year
  Sex: Male

DRUGS (5)
  1. VELCADE [Suspect]
     Indication: MULTIPLE MYELOMA
     Dosage: SEE IMAGE, ORAL
     Route: 048
     Dates: start: 20050901, end: 20051025
  2. THALOMID (THALIDOMIDE) CAPSULE, 50MG [Suspect]
     Indication: MULTIPLE MYELOMA
     Dosage: 100.00 MG, QD, ORAL
     Route: 048
     Dates: start: 20050811, end: 20050901
  3. ZOMETA [Concomitant]
  4. ZOFRAN [Concomitant]
  5. DECADRON SRC [Concomitant]

REACTIONS (1)
  - NEUROPATHY [None]
